FAERS Safety Report 6360725-8 (Version None)
Quarter: 2009Q3

REPORT INFORMATION
  Report Type: 
  Country: None (occurrence: None)
  Receive Date: 20090918
  Receipt Date: 20090910
  Transmission Date: 20100115
  Serious: Yes (Hospitalization, Other)
  Sender: FDA-Public Use
  Company Number: US-BIOGENIDEC-2009BI029473

PATIENT
  Sex: Female

DRUGS (3)
  1. AVONEX [Suspect]
     Indication: MULTIPLE SCLEROSIS
     Route: 030
     Dates: start: 20070419, end: 20071022
  2. AVONEX [Suspect]
     Route: 030
     Dates: start: 20071127, end: 20081217
  3. AVONEX [Suspect]
     Route: 030
     Dates: start: 20090430, end: 20090610

REACTIONS (5)
  - COGNITIVE DISORDER [None]
  - CONVULSION [None]
  - GALLBLADDER NON-FUNCTIONING [None]
  - HEPATIC FAILURE [None]
  - PANCREATIC INSUFFICIENCY [None]
